FAERS Safety Report 5912002-4 (Version None)
Quarter: 2008Q4

REPORT INFORMATION
  Report Type: 
  Country: None (occurrence: None)
  Receive Date: 20081008
  Receipt Date: 20081001
  Transmission Date: 20090506
  Serious: Yes (Other)
  Sender: FDA-Public Use
  Company Number: PHHY2008MX04932

PATIENT
  Age: 83 Year
  Sex: Female

DRUGS (2)
  1. DIOVAN HCT [Suspect]
     Indication: HYPERTENSION
     Dosage: 1 TABLET (160/25 MG) DAILY
     Route: 048
     Dates: start: 20060201
  2. DIOVAN HCT [Suspect]
     Dosage: 1.5 TABLET (160/25 MG) PER DAY
     Dates: start: 20080927

REACTIONS (10)
  - ABASIA [None]
  - ARTHRALGIA [None]
  - DYSPNOEA [None]
  - ENDOTRACHEAL INTUBATION [None]
  - FALL [None]
  - HYPERTENSION [None]
  - LUNG OPERATION [None]
  - MUSCULAR WEAKNESS [None]
  - PAIN IN EXTREMITY [None]
  - PLEURAL EFFUSION [None]
